FAERS Safety Report 25439376 (Version 1)
Quarter: 2025Q2

REPORT INFORMATION
  Report Type: Spontaneous
  Country: US (occurrence: US)
  Receive Date: 20250616
  Receipt Date: 20250616
  Transmission Date: 20250716
  Serious: No
  Sender: TEVA
  Company Number: US-TEVA-VS-3336260

PATIENT
  Age: 18 Year
  Sex: Female

DRUGS (1)
  1. AJOVY [Suspect]
     Active Substance: FREMANEZUMAB-VFRM
     Indication: Migraine prophylaxis
     Route: 065

REACTIONS (5)
  - Injection site erythema [Unknown]
  - Injection site pruritus [Unknown]
  - Injection site warmth [Unknown]
  - Injection site hypersensitivity [Unknown]
  - Injection site irritation [Unknown]
